FAERS Safety Report 20142714 (Version 1)
Quarter: 2021Q4

REPORT INFORMATION
  Report Type: Spontaneous
  Country: US (occurrence: None)
  Receive Date: 20211202
  Receipt Date: 20211202
  Transmission Date: 20220303
  Serious: Yes (Other)
  Sender: FDA-Public Use
  Company Number: US-ROCHE-2871651

PATIENT
  Age: 70 Year
  Sex: Female

DRUGS (6)
  1. LUCENTIS [Suspect]
     Active Substance: RANIBIZUMAB
     Indication: Neovascular age-related macular degeneration
     Route: 065
  2. BROLUCIZUMAB [Suspect]
     Active Substance: BROLUCIZUMAB
     Indication: Product used for unknown indication
     Route: 065
  3. OZURDEX [Concomitant]
     Active Substance: DEXAMETHASONE
     Route: 050
  4. PREDNISONE [Concomitant]
     Active Substance: PREDNISONE
  5. DUREZOL [Concomitant]
     Active Substance: DIFLUPREDNATE
     Route: 061
  6. AFLIBERCEPT [Concomitant]
     Active Substance: AFLIBERCEPT

REACTIONS (4)
  - Cataract [Unknown]
  - Uveitis [Recovered/Resolved]
  - Vitritis [Unknown]
  - Retinal disorder [Unknown]
